FAERS Safety Report 18525857 (Version 1)
Quarter: 2020Q4

REPORT INFORMATION
  Report Type: Spontaneous
  Country: JP (occurrence: JP)
  Receive Date: 20201120
  Receipt Date: 20201120
  Transmission Date: 20210114
  Serious: Yes (Death, Other)
  Sender: FDA-Public Use
  Company Number: JP-ROCHE-2717917

PATIENT

DRUGS (7)
  1. DENOSINE (JAPAN) [Suspect]
     Active Substance: GANCICLOVIR
     Indication: PRODUCT USED FOR UNKNOWN INDICATION
  2. VITAMIN C [Concomitant]
     Active Substance: ASCORBIC ACID
  3. VALIXA [Suspect]
     Active Substance: VALGANCICLOVIR
     Indication: PRODUCT USED FOR UNKNOWN INDICATION
     Route: 048
  4. DENOSINE (JAPAN) [Suspect]
     Active Substance: GANCICLOVIR
     Indication: PRODUCT USED FOR UNKNOWN INDICATION
     Route: 042
  5. AMBISOME [Concomitant]
     Active Substance: AMPHOTERICIN B
  6. PREDNISOLONE. [Concomitant]
     Active Substance: PREDNISOLONE
  7. VALIXA [Suspect]
     Active Substance: VALGANCICLOVIR
     Route: 048

REACTIONS (8)
  - Disseminated intravascular coagulation [Unknown]
  - Pneumocystis jirovecii pneumonia [Unknown]
  - Lymphocyte count decreased [Unknown]
  - Hepatic rupture [Unknown]
  - Fungal infection [Unknown]
  - Death [Fatal]
  - Staphylococcal infection [Unknown]
  - Mucormycosis [Unknown]
